FAERS Safety Report 6107045-4 (Version None)
Quarter: 2009Q1

REPORT INFORMATION
  Report Type: 
  Country: None (occurrence: None)
  Receive Date: 20090309
  Receipt Date: 20090304
  Transmission Date: 20090719
  Serious: Yes (Other)
  Sender: FDA-Public Use
  Company Number: US-BAYER-200914547NA

PATIENT
  Age: 33 Year
  Sex: Female
  Weight: 66 kg

DRUGS (3)
  1. MIRENA [Suspect]
     Indication: CONTRACEPTION
     Route: 015
     Dates: start: 20060101
  2. NEXIUM [Concomitant]
  3. WELLBUTRIN [Concomitant]

REACTIONS (3)
  - BREAST CANCER FEMALE [None]
  - NIPPLE EXUDATE BLOODY [None]
  - OVARIAN CYST [None]
